FAERS Safety Report 16106576 (Version 1)
Quarter: 2019Q1

REPORT INFORMATION
  Report Type: Report from Study
  Country: US (occurrence: US)
  Receive Date: 20190322
  Receipt Date: 20190322
  Transmission Date: 20190418
  Serious: Yes (Life-Threatening, Hospitalization, Other)
  Sender: FDA-Public Use
  Company Number: US-BAYER-2019-052013

PATIENT
  Age: 74 Year
  Sex: Male

DRUGS (1)
  1. STIVARGA [Suspect]
     Active Substance: REGORAFENIB
     Indication: COLORECTAL CANCER
     Dosage: 40 MG, QD
     Dates: start: 20181206

REACTIONS (3)
  - Cerebrovascular accident [None]
  - Hypertensive emergency [Recovered/Resolved]
  - Off label use [None]

NARRATIVE: CASE EVENT DATE: 20181206
